FAERS Safety Report 24977888 (Version 5)
Quarter: 2025Q1

REPORT INFORMATION
  Report Type: Spontaneous
  Country: US (occurrence: US)
  Receive Date: 20250217
  Receipt Date: 20250318
  Transmission Date: 20250408
  Serious: Yes (Other)
  Sender: PFIZER
  Company Number: US-PFIZER INC-202500035639

PATIENT
  Age: 83 Year
  Sex: Male
  Weight: 65.9 kg

DRUGS (6)
  1. TALZENNA [Suspect]
     Active Substance: TALAZOPARIB TOSYLATE
     Indication: Prostate cancer metastatic
     Dosage: 1 CAPSULE PO (PER ORAL) DAILY
     Route: 048
     Dates: start: 20240625, end: 202501
  2. TALZENNA [Suspect]
     Active Substance: TALAZOPARIB TOSYLATE
     Route: 048
  3. TALZENNA [Suspect]
     Active Substance: TALAZOPARIB TOSYLATE
     Dosage: 0.25 MG, DAILY
     Route: 048
  4. XTANDI [Suspect]
     Active Substance: ENZALUTAMIDE
     Indication: Prostate cancer metastatic
     Route: 048
     Dates: start: 20240625
  5. XTANDI [Suspect]
     Active Substance: ENZALUTAMIDE
     Indication: Prostate cancer
  6. ELIGARD [Concomitant]
     Active Substance: LEUPROLIDE ACETATE
     Indication: Prostate cancer metastatic
     Dosage: UNK, MONTHLY
     Dates: end: 202411

REACTIONS (4)
  - Thrombocytopenia [Unknown]
  - Pancytopenia [Unknown]
  - Anaemia [Unknown]
  - Blood glucose increased [Unknown]

NARRATIVE: CASE EVENT DATE: 20250117
